FAERS Safety Report 5387883-6 (Version None)
Quarter: 2007Q3

REPORT INFORMATION
  Report Type: 
  Country: None (occurrence: None)
  Receive Date: 20070716
  Receipt Date: 20060814
  Transmission Date: 20080115
  Serious: No
  Sender: FDA-Public Use
  Company Number: A0616280A

PATIENT
  Age: 60 Year
  Sex: Male

DRUGS (1)
  1. NICORETTE [Suspect]

REACTIONS (3)
  - GINGIVAL PAIN [None]
  - HEADACHE [None]
  - ORAL DISCOMFORT [None]
